FAERS Safety Report 21886297 (Version 20)
Quarter: 2025Q4

REPORT INFORMATION
  Report Type: Spontaneous
  Country: JP (occurrence: JP)
  Receive Date: 20230119
  Receipt Date: 20251127
  Transmission Date: 20260118
  Serious: Yes (Hospitalization, Other)
  Sender: BRISTOL-MYERS SQUIBB COMPANY
  Company Number: JP-ONO-2022JP004159

PATIENT
  Age: 35 Year
  Sex: Male

DRUGS (19)
  1. YERVOY [Suspect]
     Active Substance: IPILIMUMAB
     Indication: Malignant melanoma
     Dosage: FRIST TIME ADMINISTRATION
     Route: 041
  2. YERVOY [Suspect]
     Active Substance: IPILIMUMAB
     Dosage: SECOND TIME ADMINISTRATION
     Route: 041
  3. YERVOY [Suspect]
     Active Substance: IPILIMUMAB
     Dosage: THIRD TIME ADMINISTRATION
     Route: 041
  4. OPDIVO [Suspect]
     Active Substance: NIVOLUMAB
     Indication: Malignant melanoma
     Dosage: 41 COURSES IN TOTAL
     Route: 041
     Dates: start: 20171201, end: 20200318
  5. OPDIVO [Suspect]
     Active Substance: NIVOLUMAB
     Dosage: SECOND TIME ADMINISTRATION
     Route: 041
  6. OPDIVO [Suspect]
     Active Substance: NIVOLUMAB
     Dosage: 1ST TIME ADMINISTRATION
     Route: 041
  7. OPDIVO [Suspect]
     Active Substance: NIVOLUMAB
     Dosage: THIRD TIME ADMINISTRATION
     Route: 041
  8. PREDNISOLONE [Suspect]
     Active Substance: PREDNISOLONE
     Indication: Immune-mediated hepatic disorder
     Dosage: 180 MG, EVERYDAY
     Dates: start: 20210219, end: 20210224
  9. PREDNISOLONE [Suspect]
     Active Substance: PREDNISOLONE
     Indication: Immune-mediated dermatitis
     Dosage: 170 MG, EVERYDAY
     Dates: start: 20210225, end: 20210308
  10. PREDNISOLONE [Suspect]
     Active Substance: PREDNISOLONE
     Indication: Immune-mediated cholangitis
     Dosage: 85 MG, EVERYDAY
     Dates: start: 20210309, end: 20210313
  11. PREDNISOLONE [Suspect]
     Active Substance: PREDNISOLONE
     Indication: Skin disorder
     Dosage: 65 MG
     Dates: start: 20210314, end: 20210321
  12. PREDNISOLONE [Suspect]
     Active Substance: PREDNISOLONE
     Dosage: 40 MG
     Dates: start: 20210322, end: 20210330
  13. PREDNISOLONE [Suspect]
     Active Substance: PREDNISOLONE
     Dosage: 30 MG
     Dates: start: 20210331, end: 20210412
  14. PREDNISOLONE [Suspect]
     Active Substance: PREDNISOLONE
     Dosage: 20 MG
     Dates: start: 20210413, end: 20210428
  15. PREDNISOLONE [Suspect]
     Active Substance: PREDNISOLONE
     Dosage: 10 MG
     Dates: start: 20210429, end: 20210519
  16. PREDNISOLONE [Suspect]
     Active Substance: PREDNISOLONE
     Dosage: 100 MG, EVERYDAY
     Dates: start: 20210201, end: 20210205
  17. PREDNISOLONE [Suspect]
     Active Substance: PREDNISOLONE
     Dosage: 20 MG
     Dates: start: 20180711, end: 20180807
  18. PREDNISOLONE [Suspect]
     Active Substance: PREDNISOLONE
     Dosage: 200 MG, EVERYDAY
     Route: 048
     Dates: start: 20210206, end: 20210218
  19. ATOVAQUONE [Concomitant]
     Active Substance: ATOVAQUONE
     Indication: Prophylaxis

REACTIONS (6)
  - Immune-mediated hepatic disorder [Unknown]
  - Immune-mediated cholangitis [Unknown]
  - COVID-19 [Unknown]
  - Immune-mediated dermatitis [Unknown]
  - Acne [Unknown]
  - Malignant neoplasm progression [Unknown]

NARRATIVE: CASE EVENT DATE: 20210127
